FAERS Safety Report 5731396-6 (Version None)
Quarter: 2008Q2

REPORT INFORMATION
  Report Type: 
  Country: None (occurrence: None)
  Receive Date: 20080508
  Receipt Date: 20080428
  Transmission Date: 20081010
  Serious: Yes (Other)
  Sender: FDA-Public Use
  Company Number: HQWYE608810APR03

PATIENT
  Sex: Female

DRUGS (2)
  1. PREMPRO [Suspect]
     Dosage: UNKNOWN
     Route: 048
  2. CONJUGATED ESTROGENS [Suspect]

REACTIONS (1)
  - TRANSIENT ISCHAEMIC ATTACK [None]
